FAERS Safety Report 4628368-1 (Version None)
Quarter: 2005Q2

REPORT INFORMATION
  Report Type: 
  Country: None (occurrence: None)
  Receive Date: 20050406
  Receipt Date: 20050329
  Transmission Date: 20051028
  Serious: Yes (Hospitalization)
  Sender: FDA-Public Use
  Company Number: JP-BRISTOL-MYERS SQUIBB COMPANY-12914412

PATIENT
  Age: 12 Year
  Sex: Female

DRUGS (2)
  1. MAXIPIME [Suspect]
     Route: 041
     Dates: start: 20050326, end: 20050326
  2. THIAMINE HCL [Suspect]
     Route: 041

REACTIONS (1)
  - EXANTHEM [None]
